FAERS Safety Report 9921656 (Version 2)
Quarter: 2014Q2

REPORT INFORMATION
  Report Type: Report from Study
  Country: RO (occurrence: RO)
  Receive Date: 20140225
  Receipt Date: 20140409
  Transmission Date: 20141212
  Serious: Yes (Other)
  Sender: FDA-Public Use
  Company Number: RO-ASTELLAS-2014EU001457

PATIENT
  Sex: 0

DRUGS (9)
  1. TACROLIMUS CAPSULES [Suspect]
     Indication: RENAL TRANSPLANT
     Dosage: 4 MG, BID
     Route: 048
     Dates: start: 20130906
  2. MYFORTIC [Suspect]
     Dosage: 1440 UNK, UNKNOWN/D
     Route: 065
     Dates: start: 20130902
  3. PREDNISONE [Suspect]
     Dosage: 15 MG, UNKNOWN/D
     Route: 065
     Dates: start: 20130902
  4. BISEPTOL [Concomitant]
     Indication: ANTIFUNGAL PROPHYLAXIS
     Dosage: 480 MG, UNKNOWN/D
     Route: 048
     Dates: start: 20130902
  5. ACICLOVIR [Concomitant]
     Indication: ANTIVIRAL PROPHYLAXIS
     Dosage: 400 UNK, UNKNOWN/D
     Route: 048
     Dates: start: 20130902
  6. FAMOTIDINA [Concomitant]
     Indication: PROPHYLAXIS
     Dosage: 20 MG, UNKNOWN/D
     Route: 048
     Dates: start: 20130902
  7. OMERAN [Concomitant]
     Indication: PROPHYLAXIS
     Dosage: 20 MG, UNKNOWN/D
     Route: 048
     Dates: start: 20130902
  8. METOPROLOL [Concomitant]
     Indication: HYPERTENSION
     Dosage: 50 MG, UNKNOWN/D
     Route: 048
     Dates: start: 20130902
  9. SILIMARINA [Concomitant]
     Indication: PROPHYLAXIS
     Dosage: 70 MG, UNKNOWN/D
     Route: 048
     Dates: start: 20130902

REACTIONS (1)
  - Dyslipidaemia [Not Recovered/Not Resolved]
